FAERS Safety Report 25771030 (Version 1)
Quarter: 2025Q3

REPORT INFORMATION
  Report Type: Spontaneous
  Country: GB (occurrence: GB)
  Receive Date: 20250908
  Receipt Date: 20250908
  Transmission Date: 20251021
  Serious: Yes (Hospitalization)
  Sender: NOVITIUM PHARMA
  Company Number: GB-NOVITIUMPHARMA-2025GBNVP02259

PATIENT
  Age: 53 Year
  Sex: Female

DRUGS (14)
  1. PYRIDOSTIGMINE BROMIDE [Suspect]
     Active Substance: PYRIDOSTIGMINE BROMIDE
     Indication: Myasthenia gravis
  2. PYRIDOSTIGMINE BROMIDE [Suspect]
     Active Substance: PYRIDOSTIGMINE BROMIDE
  3. PREDNISOLONE [Concomitant]
     Active Substance: PREDNISOLONE
     Route: 048
  4. PREDNISOLONE [Concomitant]
     Active Substance: PREDNISOLONE
  5. PREDNISOLONE [Concomitant]
     Active Substance: PREDNISOLONE
  6. PREDNISOLONE [Concomitant]
     Active Substance: PREDNISOLONE
  7. AZATHIOPRINE [Concomitant]
     Active Substance: AZATHIOPRINE
  8. AZATHIOPRINE [Concomitant]
     Active Substance: AZATHIOPRINE
  9. AZATHIOPRINE [Concomitant]
     Active Substance: AZATHIOPRINE
  10. AZATHIOPRINE [Concomitant]
     Active Substance: AZATHIOPRINE
  11. Immune-globulin [Concomitant]
     Route: 042
  12. Immune-globulin [Concomitant]
  13. METHYLPREDNISOLONE [Concomitant]
     Active Substance: METHYLPREDNISOLONE
     Route: 042
  14. GLICLAZIDE [Concomitant]
     Active Substance: GLICLAZIDE
     Indication: Diabetes mellitus

REACTIONS (1)
  - Condition aggravated [Unknown]
